FAERS Safety Report 8445340-4 (Version None)
Quarter: 2012Q2

REPORT INFORMATION
  Report Type: 
  Country: None (occurrence: None)
  Receive Date: 20120612
  Receipt Date: 20120612
  Transmission Date: 20120825
  Serious: Yes (Other)
  Sender: FDA-Public Use
  Company Number: None

PATIENT
  Sex: Female

DRUGS (1)
  1. FOLLISTIM [Suspect]
     Indication: INFERTILITY
     Dosage: 75 MG EVERY OTHER DAY ID
     Route: 023
     Dates: start: 20120531, end: 20120604

REACTIONS (1)
  - URTICARIA [None]
